FAERS Safety Report 11130102 (Version 1)
Quarter: 2015Q2

REPORT INFORMATION
  Report Type: Spontaneous
  Country: IL (occurrence: IL)
  Receive Date: 20150521
  Receipt Date: 20150521
  Transmission Date: 20150821
  Serious: Yes (Other)
  Sender: FDA-Public Use
  Company Number: IL-SA-2015SA065361

PATIENT
  Age: 32 Year
  Sex: Female

DRUGS (1)
  1. CAMPATH [Suspect]
     Active Substance: ALEMTUZUMAB
     Indication: MYCOSIS FUNGOIDES
     Route: 065

REACTIONS (4)
  - Mycobacterial infection [Unknown]
  - Off label use [Unknown]
  - T-cell lymphoma [Unknown]
  - Mycosis fungoides [Unknown]
